FAERS Safety Report 7280485-6 (Version None)
Quarter: 2011Q1

REPORT INFORMATION
  Report Type: 
  Country: None (occurrence: None)
  Receive Date: 20110208
  Receipt Date: 20110128
  Transmission Date: 20110831
  Serious: Yes (Death)
  Sender: FDA-Public Use
  Company Number: DE-ROCHE-757536

PATIENT

DRUGS (1)
  1. CAPECITABINE [Suspect]
     Dosage: 8TH CYCLE FROM 1 JAN 2010 UNTIL 14 JAN 2010
     Route: 065
     Dates: end: 20100114

REACTIONS (1)
  - DEATH [None]
